FAERS Safety Report 9801744 (Version 3)
Quarter: 2014Q1

REPORT INFORMATION
  Report Type: Report from Study
  Country: GR (occurrence: GR)
  Receive Date: 20140107
  Receipt Date: 20140129
  Transmission Date: 20141002
  Serious: Yes (Hospitalization)
  Sender: FDA-Public Use
  Company Number: GR-B.I. PHARMACEUTICALS,INC./RIDGEFIELD-2013-BI-44225II

PATIENT
  Age: 59 Year
  Sex: Female
  Weight: 56 kg

DRUGS (15)
  1. BIBW 2992 [Suspect]
     Indication: METASTATIC GASTRIC CANCER
     Dosage: 40 MG
     Route: 048
     Dates: start: 20131120
  2. CISPLATIN [Suspect]
     Indication: METASTATIC GASTRIC CANCER
     Dosage: 115 MG
     Route: 042
     Dates: start: 20131118, end: 20131118
  3. FLUOROURACIL [Suspect]
     Indication: METASTATIC GASTRIC CANCER
     Dosage: 1150 MG
     Route: 042
     Dates: start: 20131118, end: 20131121
  4. PRIMPERAN [Concomitant]
     Indication: ANTIEMETIC SUPPORTIVE CARE
     Dosage: 10 MG
     Route: 042
     Dates: start: 20131113, end: 20131211
  5. TRANSAMIN [Concomitant]
     Indication: GASTRIC HAEMORRHAGE
     Dosage: 500 MG
     Route: 042
     Dates: start: 20131120, end: 20131127
  6. FENISTIL [Concomitant]
     Indication: ALLERGY PROPHYLAXIS
     Dosage: 4 MG
     Route: 042
     Dates: start: 20131120, end: 20131124
  7. DIOVAN [Concomitant]
     Indication: HYPERTENSION
     Dosage: 80 MG
     Route: 048
  8. ULTRA LEVURE [Concomitant]
     Indication: PROPHYLAXIS
     Route: 048
     Dates: start: 20131128, end: 20131205
  9. ESELAN [Concomitant]
     Indication: PROPHYLAXIS
     Dosage: 160 MG
     Route: 042
     Dates: start: 20131115, end: 20131212
  10. HEPARIN [Concomitant]
     Indication: ANTICOAGULANT THERAPY
     Dosage: 500 U
     Route: 042
     Dates: start: 20131119, end: 20131119
  11. NAFLOXIN [Concomitant]
     Indication: PYREXIA
     Dosage: 1600 MG
     Route: 042
     Dates: start: 20131118, end: 20131125
  12. TAVOR [Concomitant]
     Indication: ANXIETY
     Route: 058
     Dates: start: 20131120, end: 20131122
  13. GRANOCYTE [Concomitant]
     Indication: WHITE BLOOD CELL COUNT DECREASED
     Route: 058
     Dates: start: 20131123, end: 20131125
  14. T4 [Concomitant]
     Indication: HYPOTHYROIDISM
  15. FFP [Concomitant]
     Indication: VOMITING
     Route: 042
     Dates: start: 20131120, end: 20131124

REACTIONS (1)
  - Enterocolitis infectious [Recovered/Resolved]
